FAERS Safety Report 25399155 (Version 1)
Quarter: 2025Q2

REPORT INFORMATION
  Report Type: Spontaneous
  Country: US (occurrence: US)
  Receive Date: 20250605
  Receipt Date: 20250605
  Transmission Date: 20250716
  Serious: Yes (Hospitalization)
  Sender: JOHNSON AND JOHNSON
  Company Number: US-JNJFOC-20250536526

PATIENT
  Age: 23 Year
  Sex: Female

DRUGS (2)
  1. CONCERTA [Interacting]
     Active Substance: METHYLPHENIDATE HYDROCHLORIDE
     Indication: Attention deficit hyperactivity disorder
     Route: 065
     Dates: end: 202504
  2. RECORLEV [Interacting]
     Active Substance: LEVOKETOCONAZOLE
     Indication: Cushing^s syndrome
     Dates: start: 20250201

REACTIONS (6)
  - Norovirus infection [Recovered/Resolved]
  - Brain fog [Recovered/Resolved]
  - Initial insomnia [Not Recovered/Not Resolved]
  - Product dose omission issue [Unknown]
  - Drug interaction [Unknown]
  - Vomiting [Recovered/Resolved]

NARRATIVE: CASE EVENT DATE: 20250201
